FAERS Safety Report 5624132-5 (Version None)
Quarter: 2008Q1

REPORT INFORMATION
  Report Type: 
  Country: None (occurrence: None)
  Receive Date: 20080213
  Receipt Date: 20080204
  Transmission Date: 20080703
  Serious: Yes (Hospitalization, Other)
  Sender: FDA-Public Use
  Company Number: US-BAYER-200813010NA

PATIENT
  Age: 27 Year
  Sex: Female
  Weight: 125 kg

DRUGS (4)
  1. MIRENA [Suspect]
     Indication: MENSTRUATION IRREGULAR
     Route: 015
     Dates: start: 20070801, end: 20080130
  2. NUVARING [Concomitant]
     Indication: ENDOMETRIOSIS
     Dates: start: 20070501, end: 20070801
  3. TANDENE [Concomitant]
     Indication: ANAEMIA
     Route: 048
     Dates: start: 20070501
  4. GAS X [Concomitant]
     Indication: ABDOMINAL DISTENSION
     Route: 048
     Dates: start: 20080202

REACTIONS (7)
  - ABDOMINAL DISTENSION [None]
  - ANAEMIA [None]
  - ENDOMETRIOSIS [None]
  - HYPERSENSITIVITY [None]
  - UTERINE SPASM [None]
  - VAGINAL DISCHARGE [None]
  - VAGINAL HAEMORRHAGE [None]
